FAERS Safety Report 20735971 (Version 1)
Quarter: 2022Q2

REPORT INFORMATION
  Report Type: Spontaneous
  Country: US (occurrence: US)
  Receive Date: 20220421
  Receipt Date: 20220421
  Transmission Date: 20220721
  Serious: No
  Sender: FDA-Public Use
  Company Number: US-NOVARTISTESTPH-NVSC2022US092178

PATIENT
  Sex: Female

DRUGS (1)
  1. XIIDRA [Suspect]
     Active Substance: LIFITEGRAST
     Indication: Dry eye
     Dosage: UNK
     Route: 065

REACTIONS (6)
  - Ocular hyperaemia [Unknown]
  - Sinus congestion [Unknown]
  - Vision blurred [Unknown]
  - Dry eye [Unknown]
  - Eye irritation [Unknown]
  - Lacrimation increased [Unknown]
